FAERS Safety Report 21926616 (Version 1)
Quarter: 2023Q1

REPORT INFORMATION
  Report Type: Spontaneous
  Country: US (occurrence: None)
  Receive Date: 20230127
  Receipt Date: 20230127
  Transmission Date: 20230418
  Serious: Yes (Other)
  Sender: FDA-Public Use
  Company Number: None

PATIENT
  Sex: Female

DRUGS (27)
  1. ENBREL [Suspect]
     Active Substance: ETANERCEPT
     Indication: Ankylosing spondylitis
     Dosage: 50 MG/ML SUBCUTANEOUS??INJECT 50 MG (1ML) UNDER THE SKIN (SUBCUTANEOUS INJECTION) EVERY 7 (SEVEN) DA
     Route: 058
     Dates: start: 20210305
  2. ALBUTEROL AER HFA [Concomitant]
  3. ASPIRIN LOW MG EC [Concomitant]
  4. BETAMETH DIP CRE 0.05% [Concomitant]
  5. BUSPIRONE [Concomitant]
     Active Substance: BUSPIRONE HYDROCHLORIDE
  6. CICLOPIROX SOL 8% [Concomitant]
  7. CLOBETASOL OIN 0.05% [Concomitant]
  8. CLOTRIMAZOLE SOL 1% [Concomitant]
  9. DESVENLAFAX [Concomitant]
  10. ESTRADIOL CRE 0.01% [Concomitant]
  11. ESTRADIOL [Concomitant]
     Active Substance: ESTRADIOL
  12. FLOVENT HFA AER [Concomitant]
  13. FLUCONAZOLE [Concomitant]
     Active Substance: FLUCONAZOLE
  14. FOLIC ACID [Concomitant]
     Active Substance: FOLIC ACID
  15. GLIMEPIRIDE [Concomitant]
     Active Substance: GLIMEPIRIDE
  16. LANTUS SOLOS [Concomitant]
  17. LISINOPRIL [Concomitant]
     Active Substance: LISINOPRIL
  18. METHADONE [Concomitant]
     Active Substance: METHADONE HYDROCHLORIDE
  19. METHOTREXATE [Concomitant]
     Active Substance: METHOTREXATE
  20. OZEMPIC [Concomitant]
     Active Substance: SEMAGLUTIDE
  21. PREGABALIN [Concomitant]
     Active Substance: PREGABALIN
  22. PROGESTERONE [Concomitant]
     Active Substance: PROGESTERONE
  23. ROSUVASTATIN [Concomitant]
     Active Substance: ROSUVASTATIN
  24. SYMPROIC [Concomitant]
     Active Substance: NALDEMEDINE
  25. TRIAMCINOLON CRE 0.1% [Concomitant]
  26. TRULANCE [Concomitant]
     Active Substance: PLECANATIDE
  27. VALACYCLOVIR [Concomitant]
     Active Substance: VALACYCLOVIR HYDROCHLORIDE

REACTIONS (1)
  - Surgery [None]
